FAERS Safety Report 16889598 (Version 2)
Quarter: 2019Q4

REPORT INFORMATION
  Report Type: Spontaneous
  Country: US (occurrence: US)
  Receive Date: 20191007
  Receipt Date: 20191204
  Transmission Date: 20200122
  Serious: Yes (Death, Hospitalization, Other)
  Sender: FDA-Public Use
  Company Number: US-009507513-1910USA002747

PATIENT
  Sex: Female
  Weight: 57.31 kg

DRUGS (2)
  1. ATORVASTATIN [Concomitant]
     Active Substance: ATORVASTATIN
     Dosage: UNK
     Dates: start: 20170821, end: 20171219
  2. JANUMET [Suspect]
     Active Substance: METFORMIN HYDROCHLORIDE\SITAGLIPTIN PHOSPHATE
     Indication: DIABETES MELLITUS
     Dosage: 1 TABLET (50-1000 MG, ALSO REPORTED AS 1 PILL), TWICE (2X) DAILY
     Route: 048
     Dates: start: 20151111

REACTIONS (17)
  - Insomnia [Unknown]
  - Pancreatic carcinoma metastatic [Fatal]
  - Feeling of despair [Unknown]
  - Pneumobilia [Unknown]
  - Depressed mood [Unknown]
  - Gastrointestinal haemorrhage [Unknown]
  - Mood swings [Unknown]
  - Weight decreased [Unknown]
  - Ascites [Unknown]
  - Depression [Unknown]
  - Pain [Unknown]
  - Splenic lesion [Unknown]
  - Increased tendency to bruise [Unknown]
  - Pancreatic mass [Unknown]
  - Heart valve operation [Unknown]
  - Renal artery stent placement [Unknown]
  - Amnesia [Unknown]

NARRATIVE: CASE EVENT DATE: 2016
